FAERS Safety Report 9115028 (Version 1)
Quarter: 2013Q1

REPORT INFORMATION
  Report Type: Spontaneous
  Country: US (occurrence: None)
  Receive Date: 20130220
  Receipt Date: 20130220
  Transmission Date: 20140127
  Serious: No
  Sender: FDA-Public Use
  Company Number: None

PATIENT
  Age: 63 Year
  Sex: Male
  Weight: 145 kg

DRUGS (1)
  1. TAMSULOSIN [Suspect]
     Indication: URINARY INCONTINENCE
     Route: 048
     Dates: start: 20130205, end: 20130205

REACTIONS (3)
  - Rash [None]
  - Pharyngeal oedema [None]
  - Anaphylactic reaction [None]
